FAERS Safety Report 9098811 (Version 4)
Quarter: 2013Q2

REPORT INFORMATION
  Report Type: Spontaneous
  Country: US (occurrence: US)
  Receive Date: 20130213
  Receipt Date: 20130423
  Transmission Date: 20140414
  Serious: Yes (Other)
  Sender: FDA-Public Use
  Company Number: US-009507513-1302USA001614

PATIENT
  Age: 19 Year
  Sex: Female
  Weight: 90.7 kg

DRUGS (1)
  1. IMPLANON [Suspect]
     Indication: CONTRACEPTION
     Dosage: UNK
     Route: 059
     Dates: start: 20120619

REACTIONS (6)
  - Abortion threatened [Unknown]
  - Caesarean section [Unknown]
  - Unintended pregnancy [Recovered/Resolved]
  - Medical device complication [Unknown]
  - Inappropriate schedule of drug administration [Unknown]
  - Abdominal pain [Unknown]
